FAERS Safety Report 23695524 (Version 2)
Quarter: 2024Q2

REPORT INFORMATION
  Report Type: Other
  Country: IN (occurrence: None)
  Receive Date: 20240402
  Receipt Date: 20240515
  Transmission Date: 20240716
  Serious: Yes (Death)
  Sender: FDA-Public Use
  Company Number: IN-ROCHE-3536514

PATIENT
  Age: 41 Year
  Sex: Female

DRUGS (1)
  1. KADCYLA [Suspect]
     Active Substance: ADO-TRASTUZUMAB EMTANSINE
     Indication: Breast cancer metastatic
     Dosage: NO
     Route: 042
     Dates: start: 20240111

REACTIONS (1)
  - Death [Fatal]

NARRATIVE: CASE EVENT DATE: 20240206
